FAERS Safety Report 12666646 (Version 2)
Quarter: 2016Q3

REPORT INFORMATION
  Report Type: Spontaneous
  Country: CN (occurrence: CN)
  Receive Date: 20160819
  Receipt Date: 20160826
  Transmission Date: 20161109
  Serious: Yes (Death, Other)
  Sender: FDA-Public Use
  Company Number: CN-SUN PHARMACEUTICAL INDUSTRIES LTD-2016RR-122099

PATIENT
  Age: 66 Year
  Sex: Male

DRUGS (11)
  1. BORTEZOMIB [Suspect]
     Active Substance: BORTEZOMIB
     Indication: PLASMA CELL MYELOMA
     Dosage: 2 CYCLES, 2.0 MG ON DAYS 1,4,7,11 (1,8,15,22)
     Route: 065
     Dates: start: 20100622
  2. DEXAMETHASONE. [Suspect]
     Active Substance: DEXAMETHASONE
     Dosage: 20 MG, DAILY
     Route: 065
     Dates: start: 20101227
  3. DEXAMETHASONE. [Suspect]
     Active Substance: DEXAMETHASONE
     Indication: PLASMA CELL MYELOMA
     Dosage: 20 MG, DAILY, 2 CYCLES,
     Route: 065
     Dates: start: 20100622
  4. PIRARUBICIN [Suspect]
     Active Substance: PIRARUBICIN
     Indication: PLASMA CELL MYELOMA
     Dosage: 10 MG, DAILY
     Route: 065
     Dates: start: 20101116
  5. VINCRISTINE [Suspect]
     Active Substance: VINCRISTINE
     Indication: PLASMA CELL MYELOMA
     Dosage: 0.5 MG, DAILY
     Route: 065
     Dates: start: 20101116
  6. PIRARUBICIN [Suspect]
     Active Substance: PIRARUBICIN
     Dosage: 10 MG, DAILY
     Route: 065
     Dates: start: 20101227
  7. MELPHALAN [Suspect]
     Active Substance: MELPHALAN
     Indication: PLASMA CELL MYELOMA
     Dosage: 12 MG, DAILY, ON DAYS1-4
     Route: 065
     Dates: start: 20101116
  8. LENALIDOMIDE [Suspect]
     Active Substance: LENALIDOMIDE
     Indication: PLASMA CELL MYELOMA
     Dosage: 10 MG, DAILY, ON DAYS 1-21 EVERY 28 DAYS
     Route: 065
     Dates: start: 20100915
  9. THALIDOMIDE [Suspect]
     Active Substance: THALIDOMIDE
     Indication: PLASMA CELL MYELOMA
     Dosage: 200 MG, DAILY
     Route: 065
     Dates: start: 20110209, end: 20130913
  10. DEXAMETHASONE. [Suspect]
     Active Substance: DEXAMETHASONE
     Dosage: 20 MG, DAILY
     Route: 065
     Dates: start: 20101116
  11. VINCRISTINE [Suspect]
     Active Substance: VINCRISTINE
     Dosage: 0.5 MG, DAILY
     Route: 065
     Dates: start: 20101227

REACTIONS (1)
  - Acute lymphocytic leukaemia [Fatal]
